FAERS Safety Report 7601382-X (Version None)
Quarter: 2011Q2

REPORT INFORMATION
  Report Type: 
  Country: None (occurrence: None)
  Receive Date: 20110629
  Receipt Date: 20110616
  Transmission Date: 20111010
  Serious: Yes (Other)
  Sender: FDA-Public Use
  Company Number: 2011ST000146

PATIENT
  Age: 7 Year
  Sex: Male
  Weight: 28 kg

DRUGS (1)
  1. ABELCET [Suspect]
     Indication: ANTIFUNGAL PROPHYLAXIS
     Dosage: 100 MG;QD;IV
     Route: 042
     Dates: start: 20110120

REACTIONS (7)
  - PERIPHERAL COLDNESS [None]
  - BLOOD PRESSURE INCREASED [None]
  - CARDIOVASCULAR DISORDER [None]
  - CHILLS [None]
  - CYANOSIS [None]
  - HEART RATE INCREASED [None]
  - OXYGEN SATURATION IMMEASURABLE [None]
